FAERS Safety Report 19969301 (Version 1)
Quarter: 2021Q4

REPORT INFORMATION
  Report Type: Spontaneous
  Country: US (occurrence: US)
  Receive Date: 20211019
  Receipt Date: 20211019
  Transmission Date: 20220303
  Serious: No
  Sender: FDA-Public Use
  Company Number: US-DRREDDYS-SPO/USA/21/0142642

PATIENT
  Age: 77 Year
  Sex: Female
  Weight: 72 kg

DRUGS (1)
  1. DOANS EXTRA STRENGTH [Suspect]
     Active Substance: MAGNESIUM SALICYLATE
     Indication: Back pain
     Dosage: 580 MG 2 TABLETS AT BEDTIME

REACTIONS (1)
  - Abdominal pain upper [Unknown]
